FAERS Safety Report 15477101 (Version 1)
Quarter: 2018Q4

REPORT INFORMATION
  Report Type: Spontaneous
  Country: US (occurrence: US)
  Receive Date: 20181009
  Receipt Date: 20181009
  Transmission Date: 20190205
  Serious: No
  Sender: FDA-Public Use
  Company Number: US-PFIZER INC-2018399414

PATIENT
  Age: 60 Year
  Sex: Male
  Weight: 145.1 kg

DRUGS (1)
  1. NARDIL [Suspect]
     Active Substance: PHENELZINE SULFATE
     Indication: DEPRESSION
     Dosage: 15 MG, 2X/DAY
     Dates: start: 201707

REACTIONS (4)
  - Head discomfort [Unknown]
  - Musculoskeletal stiffness [Unknown]
  - Depression [Unknown]
  - Headache [Unknown]
